FAERS Safety Report 10281318 (Version 1)
Quarter: 2014Q3

REPORT INFORMATION
  Report Type: Spontaneous
  Country: US (occurrence: None)
  Receive Date: 20140702
  Receipt Date: 20140702
  Transmission Date: 20150326
  Serious: Yes (Disabling)
  Sender: FDA-Public Use
  Company Number: None

PATIENT
  Age: 53 Year
  Sex: Female
  Weight: 57.61 kg

DRUGS (2)
  1. CIPROFLOXACIN. [Suspect]
     Active Substance: CIPROFLOXACIN
     Indication: MAMMOPLASTY
     Dosage: 20 PILLS
     Route: 048
     Dates: start: 20140504, end: 20140514
  2. CIPROFLOXACIN. [Suspect]
     Active Substance: CIPROFLOXACIN
     Indication: INFECTION PROPHYLAXIS
     Dosage: 20 PILLS
     Route: 048
     Dates: start: 20140504, end: 20140514

REACTIONS (3)
  - Tremor [None]
  - Blindness [None]
  - Arthralgia [None]

NARRATIVE: CASE EVENT DATE: 20140509
